FAERS Safety Report 10176872 (Version 1)
Quarter: 2014Q2

REPORT INFORMATION
  Report Type: Spontaneous
  Country: BR (occurrence: BR)
  Receive Date: 20140516
  Receipt Date: 20140516
  Transmission Date: 20141212
  Serious: Yes (Hospitalization, Other)
  Sender: FDA-Public Use
  Company Number: BR-ASTRAZENECA-2014SE32917

PATIENT
  Sex: Male
  Weight: 60 kg

DRUGS (13)
  1. SELOZOK [Suspect]
     Route: 048
     Dates: start: 201402
  2. BRILINTA [Suspect]
     Route: 048
     Dates: start: 201402
  3. GLIFAGE XR (NON AZ PRODUCT) [Suspect]
     Route: 065
  4. SOMALGIN CARDIO [Concomitant]
  5. ATORVASTATIN [Concomitant]
  6. AMIODARONE [Concomitant]
  7. APRESOLINA [Concomitant]
  8. MONOCORDIL [Concomitant]
  9. VASTAREL [Concomitant]
  10. PLAVIX [Concomitant]
  11. TRAYENTA [Concomitant]
  12. AMIROL [Concomitant]
     Indication: PAIN IN EXTREMITY
  13. PANTOPRAZOL [Concomitant]

REACTIONS (7)
  - Weight decreased [Not Recovered/Not Resolved]
  - Hyperglycaemia [Recovered/Resolved]
  - Blood pressure abnormal [Recovered/Resolved]
  - Arrhythmia [Recovered/Resolved]
  - Pain in extremity [Not Recovered/Not Resolved]
  - Fall [Not Recovered/Not Resolved]
  - Blood glucose fluctuation [Not Recovered/Not Resolved]
